FAERS Safety Report 5570233-X (Version None)
Quarter: 2007Q4

REPORT INFORMATION
  Report Type: 
  Country: None (occurrence: None)
  Receive Date: 20071219
  Receipt Date: 20071211
  Transmission Date: 20080405
  Serious: Yes (Other)
  Sender: FDA-Public Use
  Company Number: 2007337467

PATIENT

DRUGS (1)
  1. FRESH CITRUS LISTERINE POCKETMIST (NO ACTIVE INGREDIENT) [Suspect]
     Indication: ALCOHOL POISONING
     Dosage: HALF BOTTLE,ORAL
     Route: 048
     Dates: start: 20071210

REACTIONS (1)
  - INTENTIONAL DRUG MISUSE [None]
